FAERS Safety Report 13140940 (Version 1)
Quarter: 2017Q1

REPORT INFORMATION
  Report Type: Spontaneous
  Country: US (occurrence: US)
  Receive Date: 20170123
  Receipt Date: 20170123
  Transmission Date: 20170428
  Serious: No
  Sender: FDA-Public Use
  Company Number: US-UNITED THERAPEUTICS-UNT-2016-015412

PATIENT
  Age: 1 Year
  Sex: Female
  Weight: 6.8 kg

DRUGS (2)
  1. REMODULIN [Suspect]
     Active Substance: TREPROSTINIL
     Indication: PULMONARY HYPERTENSION
     Dosage: 0.02381 ?G/KG, CONTINUING
     Route: 058
     Dates: start: 20151016
  2. REVATIO [Concomitant]
     Active Substance: SILDENAFIL CITRATE
     Indication: PRODUCT USED FOR UNKNOWN INDICATION

REACTIONS (4)
  - Infusion site erythema [Unknown]
  - Crying [Recovered/Resolved]
  - Peripheral swelling [Recovered/Resolved]
  - Infusion site pain [Unknown]

NARRATIVE: CASE EVENT DATE: 201609
